FAERS Safety Report 7983598-6 (Version None)
Quarter: 2011Q4

REPORT INFORMATION
  Report Type: 
  Country: None (occurrence: None)
  Receive Date: 20111215
  Receipt Date: 20111213
  Transmission Date: 20120403
  Serious: Yes (Hospitalization, Other)
  Sender: FDA-Public Use
  Company Number: PHHO2010PL09543

PATIENT
  Sex: Male
  Weight: 80 kg

DRUGS (8)
  1. ALLOPURINOL [Concomitant]
     Indication: GOUT
  2. BISOPROLOL FUMARATE [Concomitant]
     Indication: HYPERTENSION
  3. GILENYA [Suspect]
     Dosage: NO TREATMENT
     Dates: start: 20090829, end: 20090902
  4. GILENYA [Suspect]
     Dosage: 1.25 MG, QD
     Route: 048
     Dates: start: 20090903, end: 20091124
  5. GILENYA [Suspect]
     Dosage: 0.5 MG, QD
     Route: 048
     Dates: start: 20100311
  6. LACIDIPINE [Concomitant]
     Indication: HYPERTENSION
  7. GILENYA [Suspect]
     Indication: MULTIPLE SCLEROSIS
     Dosage: 1.25 MG, QD
     Route: 048
     Dates: start: 20090811, end: 20090828
  8. GILENYA [Suspect]
     Dosage: NO TREATMENT
     Dates: start: 20091125, end: 20100310

REACTIONS (7)
  - VENOUS THROMBOSIS LIMB [None]
  - GOITRE [None]
  - PARAPSORIASIS [None]
  - ALANINE AMINOTRANSFERASE INCREASED [None]
  - ORAL HERPES [None]
  - SKIN LESION [None]
  - LYMPHOPENIA [None]
